FAERS Safety Report 11980882 (Version 2)
Quarter: 2016Q1

REPORT INFORMATION
  Report Type: Spontaneous
  Country: US (occurrence: US)
  Receive Date: 20160129
  Receipt Date: 20160317
  Transmission Date: 20160526
  Serious: Yes (Death, Hospitalization, Other)
  Sender: FDA-Public Use
  Company Number: US-PFIZER INC-2016046346

PATIENT
  Age: 70 Year
  Sex: Male

DRUGS (4)
  1. MEGESTROL [Concomitant]
     Active Substance: MEGESTROL
     Dosage: 40 MG/ML, DAILY (TAKE 20 ML BY MOUTH DAILY)
     Route: 048
  2. SUTENT [Suspect]
     Active Substance: SUNITINIB MALATE
     Dosage: 50 MG, 1X/DAY
     Dates: start: 201501
  3. SUTENT [Suspect]
     Active Substance: SUNITINIB MALATE
     Indication: RENAL CANCER METASTATIC
     Dosage: 4 DF, CYCLIC (12.5 MG; 4 CAPSULES ONCE DAILY, CYCLE 27 DAYS)
     Dates: start: 201501
  4. AZITHROMYCIN ANHYDROUS. [Concomitant]
     Active Substance: AZITHROMYCIN ANHYDROUS
     Dosage: 250MG, 2 TABLETS ON DAY1, THE 1 TABLET ONCE DAILY ON DAYS 2 THRU 5

REACTIONS (7)
  - Jaundice [Unknown]
  - Asthenia [Unknown]
  - Decreased appetite [Unknown]
  - Platelet count decreased [Unknown]
  - Dizziness [Unknown]
  - Rectal haemorrhage [Unknown]
  - Death [Fatal]

NARRATIVE: CASE EVENT DATE: 20150203
